FAERS Safety Report 4576534-6 (Version None)
Quarter: 2005Q1

REPORT INFORMATION
  Report Type: 
  Country: None (occurrence: None)
  Receive Date: 20050119
  Receipt Date: 20040501
  Transmission Date: 20050727
  Serious: Yes (Other)
  Sender: FDA-Public Use
  Company Number: A03200401448

PATIENT
  Age: 73 Year
  Sex: Female
  Weight: 82.1011 kg

DRUGS (13)
  1. PLAVIX [Suspect]
     Indication: STENT PLACEMENT
     Dosage: 75 MG QD - ORAL
     Route: 048
  2. SIMVASTATIN [Concomitant]
  3. BUMETANIDE [Concomitant]
  4. LEVOTHYROXINE [Concomitant]
  5. ACETYLSALICYLIC ACID [Concomitant]
  6. CELECOXIB [Concomitant]
  7. ESOMEPRAZOLE [Concomitant]
  8. FOLIC ACID [Concomitant]
  9. VITAMIN C [Concomitant]
  10. IRON [Concomitant]
  11. CALCIUM GLUCONATE [Concomitant]
  12. POTASSIUM CHLORIDE [Concomitant]
  13. AZITHROMYCIN [Concomitant]

REACTIONS (1)
  - ANAEMIA [None]
